FAERS Safety Report 22830956 (Version 2)
Quarter: 2023Q4

REPORT INFORMATION
  Report Type: Spontaneous
  Country: CA (occurrence: CA)
  Receive Date: 20230817
  Receipt Date: 20231120
  Transmission Date: 20240110
  Serious: Yes (Other)
  Sender: FDA-Public Use
  Company Number: CA-TAKEDA-2023TUS078659

PATIENT
  Age: 1 Year
  Sex: Male

DRUGS (3)
  1. GAMMAGARD LIQUID [Suspect]
     Active Substance: HUMAN IMMUNOGLOBULIN G
     Indication: Intraductal proliferative breast lesion
     Dosage: 5 GRAM
     Route: 042
  2. GAMMAGARD LIQUID [Suspect]
     Active Substance: HUMAN IMMUNOGLOBULIN G
     Dosage: 20 MILLILITER
     Route: 065
     Dates: start: 20230501, end: 20230501
  3. Reactine [Concomitant]
     Dosage: UNK
     Route: 065

REACTIONS (16)
  - Allergic transfusion reaction [Unknown]
  - Heart rate decreased [Unknown]
  - Febrile neutropenia [Unknown]
  - Tachypnoea [Unknown]
  - Dysphonia [Unknown]
  - Oxygen saturation increased [Unknown]
  - Vomiting [Unknown]
  - Anaphylactic reaction [Unknown]
  - Tachycardia [Unknown]
  - Blood pressure increased [Unknown]
  - Body temperature increased [Unknown]
  - Chills [Unknown]
  - Wheezing [Unknown]
  - Dyspnoea [Unknown]
  - Pyrexia [Unknown]
  - Hypersensitivity [Unknown]
